FAERS Safety Report 5274443-0 (Version None)
Quarter: 2007Q1

REPORT INFORMATION
  Report Type: 
  Country: None (occurrence: None)
  Receive Date: 20070320
  Receipt Date: 20070309
  Transmission Date: 20070707
  Serious: Yes (Other)
  Sender: FDA-Public Use
  Company Number: 238173

PATIENT
  Age: 65 Year
  Sex: Female

DRUGS (5)
  1. RITUXAN [Suspect]
  2. VINCRISTINE [Concomitant]
  3. DOXORUBICIN HCL [Concomitant]
  4. CYCLOPHOSPHAMIDE [Concomitant]
  5. PREDNISOLONE [Concomitant]

REACTIONS (1)
  - MYELODYSPLASTIC SYNDROME [None]
